FAERS Safety Report 4975155-0 (Version None)
Quarter: 2006Q2

REPORT INFORMATION
  Report Type: 
  Country: None (occurrence: None)
  Receive Date: 20060418
  Receipt Date: 20060105
  Transmission Date: 20061013
  Serious: Yes (Hospitalization, Other)
  Sender: FDA-Public Use
  Company Number: PHMT2006CA00459

PATIENT
  Age: 19 Year
  Sex: Male

DRUGS (6)
  1. HALDOL [Concomitant]
     Dosage: 1 MG, ONCE/SINGLE
     Route: 048
     Dates: start: 20051208, end: 20051208
  2. SEROQUEL [Concomitant]
     Dosage: 175 MG, QHS
     Route: 048
  3. ATIVAN [Concomitant]
     Dosage: 1 MG
     Route: 048
     Dates: start: 20051207, end: 20051207
  4. ATIVAN [Concomitant]
     Dosage: UNK, ONCE/SINGLE
     Route: 048
     Dates: start: 20051205, end: 20051205
  5. CLOZARIL [Suspect]
     Indication: SCHIZOPHRENIA, PARANOID TYPE
     Dosage: 125 MG, QHS
     Route: 048
     Dates: start: 20051103, end: 20051208
  6. CLOZARIL [Suspect]
     Dosage: 100 MG, QHS
     Route: 048
     Dates: start: 20060127

REACTIONS (4)
  - BUNDLE BRANCH BLOCK LEFT [None]
  - BUNDLE BRANCH BLOCK RIGHT [None]
  - CHEST PAIN [None]
  - CONDUCTION DISORDER [None]
